FAERS Safety Report 9730962 (Version 2)
Quarter: 2013Q4

REPORT INFORMATION
  Report Type: Report from Study
  Country: BE (occurrence: BE)
  Receive Date: 20131205
  Receipt Date: 20131223
  Transmission Date: 20140711
  Serious: Yes (Hospitalization)
  Sender: FDA-Public Use
  Company Number: BE-BIOGENIDEC-2013BI114932

PATIENT
  Age: 48 Year
  Sex: Female

DRUGS (5)
  1. TYSABRI [Suspect]
     Indication: RELAPSING-REMITTING MULTIPLE SCLEROSIS
     Route: 042
     Dates: start: 20090717, end: 20121208
  2. TRAZODONE [Concomitant]
     Indication: HYPERSOMNIA
     Route: 048
  3. MIRTAZAPINE [Concomitant]
     Indication: DECREASED APPETITE
  4. MIRTAZAPINE [Concomitant]
     Indication: DEPRESSION
  5. LORMETAZEPAM [Concomitant]

REACTIONS (1)
  - Breast cancer [Recovered/Resolved]
